FAERS Safety Report 6162601-2 (Version None)
Quarter: 2009Q2

REPORT INFORMATION
  Report Type: 
  Country: None (occurrence: None)
  Receive Date: 20090421
  Receipt Date: 20071226
  Transmission Date: 20091009
  Serious: No
  Sender: FDA-Public Use
  Company Number: US-ASTRAZENECA-2007UW23590

PATIENT
  Age: 66 Year
  Sex: Female

DRUGS (8)
  1. CRESTOR [Suspect]
     Route: 048
  2. CRESTOR [Suspect]
     Route: 048
  3. ATACAND [Concomitant]
     Route: 048
  4. ATENOLOL [Concomitant]
     Route: 048
  5. PLAVIX [Concomitant]
  6. HYDROCHLOROTHIAZIDE [Concomitant]
  7. EFFEXOR [Concomitant]
  8. AMBIEN [Concomitant]

REACTIONS (1)
  - GOUT [None]
